FAERS Safety Report 10770665 (Version 1)
Quarter: 2015Q1

REPORT INFORMATION
  Report Type: Spontaneous
  Country: US (occurrence: None)
  Receive Date: 20150204
  Receipt Date: 20150204
  Transmission Date: 20150721
  Serious: Yes (Death)
  Sender: FDA-Public Use
  Company Number: 2727349

PATIENT
  Age: 30 Year
  Sex: Female

DRUGS (5)
  1. CITALOPRAM [Suspect]
     Active Substance: CITALOPRAM HYDROBROMIDE
     Dates: start: 2013, end: 2013
  2. CHLORPROMAZINE [Suspect]
     Active Substance: CHLORPROMAZINE
     Dates: start: 2013, end: 2013
  3. MORPHINE SULPHATE [Suspect]
     Active Substance: MORPHINE SULFATE
     Dates: start: 2013, end: 2013
  4. QUETIAPINE [Suspect]
     Active Substance: QUETIAPINE
     Dates: start: 2013, end: 2013
  5. TRAZODONE [Suspect]
     Active Substance: TRAZODONE HYDROCHLORIDE
     Dates: start: 2013, end: 2013

REACTIONS (3)
  - Respiratory arrest [None]
  - Poisoning deliberate [None]
  - Cardiac arrest [None]

NARRATIVE: CASE EVENT DATE: 2013
